FAERS Safety Report 8935649 (Version 3)
Quarter: 2013Q1

REPORT INFORMATION
  Report Type: Spontaneous
  Country: PT (occurrence: PT)
  Receive Date: 20121130
  Receipt Date: 20130204
  Transmission Date: 20140127
  Serious: Yes (Other)
  Sender: FDA-Public Use
  Company Number: PT-JNJFOC-20121114304

PATIENT
  Age: 7 Year
  Sex: Female
  Weight: 39 kg

DRUGS (3)
  1. REMICADE [Suspect]
     Indication: UVEITIS
     Route: 042
     Dates: start: 20120626, end: 20120626
  2. CICLOSPORIN [Suspect]
     Indication: UVEITIS
     Route: 048
     Dates: start: 20111230, end: 201206
  3. METHOTREXATE SODIUM [Concomitant]
     Indication: UVEITIS
     Route: 048
     Dates: start: 20091126

REACTIONS (2)
  - Intracranial pressure increased [Recovered/Resolved]
  - Papilloedema [Recovered/Resolved]
